FAERS Safety Report 8399942-4 (Version None)
Quarter: 2012Q2

REPORT INFORMATION
  Report Type: 
  Country: None (occurrence: None)
  Receive Date: 20120531
  Receipt Date: 20120425
  Transmission Date: 20120825
  Serious: Yes (Hospitalization)
  Sender: FDA-Public Use
  Company Number: IT-BAXTER-2012BAX003141

PATIENT
  Sex: Male

DRUGS (11)
  1. IFOSFAMIDE [Suspect]
     Indication: NON-HODGKIN'S LYMPHOMA RECURRENT
     Route: 042
     Dates: start: 20111123, end: 20111125
  2. CARBOPLATIN [Suspect]
     Indication: NON-HODGKIN'S LYMPHOMA RECURRENT
     Route: 042
     Dates: start: 20111123, end: 20111125
  3. MESNA [Concomitant]
     Route: 042
     Dates: start: 20111123, end: 20111125
  4. ETOPOSIDE [Suspect]
     Indication: NON-HODGKIN'S LYMPHOMA RECURRENT
     Route: 042
     Dates: start: 20111123, end: 20111125
  5. MABTHERA [Suspect]
     Indication: NON-HODGKIN'S LYMPHOMA RECURRENT
     Route: 042
     Dates: start: 20111128, end: 20111128
  6. MYCOSTATIN [Concomitant]
     Route: 048
     Dates: start: 20111201, end: 20111205
  7. ACETAMINOPHEN [Concomitant]
     Route: 048
     Dates: start: 20111128, end: 20111128
  8. CHLORPHENIRAMINE TAB [Concomitant]
     Route: 040
     Dates: start: 20111128, end: 20111128
  9. ALLOPURINOL [Concomitant]
     Route: 048
  10. ONDANSETRON [Concomitant]
     Route: 040
     Dates: start: 20111123, end: 20111125
  11. NEULASTA [Concomitant]
     Route: 058
     Dates: start: 20111126, end: 20111126

REACTIONS (6)
  - PYREXIA [None]
  - BONE MARROW FAILURE [None]
  - MUCOSAL INFLAMMATION [None]
  - NEUTROPENIA [None]
  - PNEUMONIA [None]
  - THROMBOCYTOPENIA [None]
